FAERS Safety Report 25539578 (Version 1)
Quarter: 2025Q3

REPORT INFORMATION
  Report Type: Spontaneous
  Country: IL (occurrence: IL)
  Receive Date: 20250710
  Receipt Date: 20250710
  Transmission Date: 20251021
  Serious: Yes (Death)
  Sender: EISAI
  Company Number: IL-Eisai-EC-2025-192973

PATIENT
  Age: 66 Year
  Sex: Female

DRUGS (3)
  1. LENVATINIB [Suspect]
     Active Substance: LENVATINIB
     Indication: Endometrial cancer
     Dates: start: 202407, end: 202504
  2. LENVATINIB [Suspect]
     Active Substance: LENVATINIB
     Dates: start: 202504, end: 202505
  3. PEMBROLIZUMAB [Suspect]
     Active Substance: PEMBROLIZUMAB
     Indication: Endometrial cancer
     Dates: start: 202407, end: 202504

REACTIONS (2)
  - Encephalitis [Fatal]
  - Colitis [Unknown]

NARRATIVE: CASE EVENT DATE: 20250401
